FAERS Safety Report 18732842 (Version 1)
Quarter: 2021Q1

REPORT INFORMATION
  Report Type: Spontaneous
  Country: US (occurrence: US)
  Receive Date: 20210112
  Receipt Date: 20210112
  Transmission Date: 20210419
  Serious: No
  Sender: FDA-Public Use
  Company Number: US-NEXGEN PHARMA, INC.-2105248

PATIENT
  Sex: Female

DRUGS (5)
  1. BAC (BUTALBITAL 50MG, ACETAMINOPHEN 300MG AND CAFFEINE 40MG) [Suspect]
     Active Substance: ACETAMINOPHEN\BUTALBITAL\CAFFEINE
     Indication: CHRONIC OBSTRUCTIVE PULMONARY DISEASE
     Route: 048
  2. BAC (BUTALBITAL 50MG, ACETAMINOPHEN 300MG AND CAFFEINE 40MG) [Suspect]
     Active Substance: ACETAMINOPHEN\BUTALBITAL\CAFFEINE
     Indication: INTERVERTEBRAL DISC PROTRUSION
     Route: 048
  3. BAC (BUTALBITAL 50MG, ACETAMINOPHEN 300MG AND CAFFEINE 40MG) [Suspect]
     Active Substance: ACETAMINOPHEN\BUTALBITAL\CAFFEINE
     Indication: PAIN
     Route: 048
  4. BAC (BUTALBITAL 50MG, ACETAMINOPHEN 300MG AND CAFFEINE 40MG) [Suspect]
     Active Substance: ACETAMINOPHEN\BUTALBITAL\CAFFEINE
     Indication: BACK PAIN
     Route: 048
  5. BAC (BUTALBITAL 50MG, ACETAMINOPHEN 300MG AND CAFFEINE 40MG) [Suspect]
     Active Substance: ACETAMINOPHEN\BUTALBITAL\CAFFEINE
     Indication: FIBROMYALGIA
     Route: 048

REACTIONS (1)
  - Drug ineffective [Unknown]
